FAERS Safety Report 25355265 (Version 3)
Quarter: 2025Q4

REPORT INFORMATION
  Report Type: Spontaneous
  Country: US (occurrence: US)
  Receive Date: 20250524
  Receipt Date: 20251028
  Transmission Date: 20260117
  Serious: No
  Sender: PHARMING GROUP
  Company Number: US-PHARMING-PHAUS2025000733

PATIENT

DRUGS (2)
  1. RUCONEST [Suspect]
     Active Substance: CONESTAT ALFA
     Indication: Hereditary angioedema
     Dosage: 2595 IU, AS NEEDED
     Route: 042
     Dates: start: 202407
  2. RUCONEST [Suspect]
     Active Substance: CONESTAT ALFA
     Dosage: 2600 IU, AS NEEDED
     Route: 042
     Dates: start: 202407

REACTIONS (2)
  - Weight fluctuation [Unknown]
  - Therapeutic product effect incomplete [Unknown]
